FAERS Safety Report 21369678 (Version 1)
Quarter: 2022Q3

REPORT INFORMATION
  Report Type: Spontaneous
  Country: PT (occurrence: PT)
  Receive Date: 20220923
  Receipt Date: 20220923
  Transmission Date: 20221027
  Serious: Yes (Death)
  Sender: FDA-Public Use
  Company Number: None

PATIENT
  Age: 65 Year
  Sex: Male

DRUGS (1)
  1. TIGECYCLINE [Suspect]
     Active Substance: TIGECYCLINE
     Indication: Septic shock
     Dosage: 100 MG LOADING DOSE FOLLOWED BY 50 MG 12/12H
     Dates: start: 20220706, end: 20220721

REACTIONS (3)
  - Liver function test increased [Fatal]
  - Hypoglycaemia [Fatal]
  - Cholestasis [Fatal]

NARRATIVE: CASE EVENT DATE: 20220721
